FAERS Safety Report 6445929-8 (Version None)
Quarter: 2009Q4

REPORT INFORMATION
  Report Type: 
  Country: None (occurrence: None)
  Receive Date: 20091119
  Receipt Date: 20090126
  Transmission Date: 20100525
  Serious: Yes (Other)
  Sender: FDA-Public Use
  Company Number: A0765291A

PATIENT
  Age: 46 Year
  Sex: Female

DRUGS (10)
  1. BUPROPION HYDROCHLORIDE [Suspect]
     Dosage: 150MG PER DAY
     Route: 048
     Dates: start: 20090119
  2. REMERON [Concomitant]
  3. OXYCONTIN [Concomitant]
  4. PERCOCET [Concomitant]
  5. SOMA [Concomitant]
  6. LORATADINE [Concomitant]
  7. PROMETHAZINE [Concomitant]
  8. POTASSIUM CHLORIDE [Concomitant]
     Dosage: 40MG PER DAY
  9. ACYCLOVIR [Concomitant]
  10. NITROGLYCERIN [Concomitant]

REACTIONS (4)
  - CONVULSION [None]
  - HOT FLUSH [None]
  - INSOMNIA [None]
  - PARAESTHESIA [None]
